FAERS Safety Report 5856498-5 (Version None)
Quarter: 2008Q3

REPORT INFORMATION
  Report Type: 
  Country: None (occurrence: None)
  Receive Date: 20080825
  Receipt Date: 20080612
  Transmission Date: 20090109
  Serious: No
  Sender: FDA-Public Use
  Company Number: A0733269A

PATIENT
  Age: 20 Year
  Sex: Female

DRUGS (2)
  1. VERAMYST [Suspect]
     Dosage: 110MCG PER DAY
     Route: 045
  2. ZYRTEC [Concomitant]
     Indication: DRUG USE FOR UNKNOWN INDICATION
     Route: 048

REACTIONS (2)
  - HEADACHE [None]
  - SLEEP DISORDER [None]
